FAERS Safety Report 25912631 (Version 1)
Quarter: 2025Q4

REPORT INFORMATION
  Report Type: Spontaneous
  Country: US (occurrence: US)
  Receive Date: 20251013
  Receipt Date: 20251013
  Transmission Date: 20260118
  Serious: No
  Sender: SANDOZ
  Company Number: US-SANDOZ-SDZ2025US073648

PATIENT
  Age: 60 Year
  Sex: Female

DRUGS (1)
  1. GLATIRAMER ACETATE [Suspect]
     Active Substance: GLATIRAMER ACETATE
     Indication: Product used for unknown indication
     Dosage: STRENGTH OF MEDICATION: 20MG /1ML
     Route: 065

REACTIONS (3)
  - Injection site bruising [Unknown]
  - Injection site discolouration [Unknown]
  - Herpes zoster [Unknown]

NARRATIVE: CASE EVENT DATE: 20251003
